FAERS Safety Report 19496327 (Version 1)
Quarter: 2021Q3

REPORT INFORMATION
  Report Type: Spontaneous
  Country: US (occurrence: US)
  Receive Date: 20210702
  Receipt Date: 20210702
  Transmission Date: 20211014
  Serious: Yes (Other)
  Sender: FDA-Public Use
  Company Number: None

PATIENT
  Age: 63 Year
  Sex: Female
  Weight: 73.8 kg

DRUGS (13)
  1. MIRALAX [Concomitant]
     Active Substance: POLYETHYLENE GLYCOL 3350
  2. HCTZ [Concomitant]
     Active Substance: HYDROCHLOROTHIAZIDE
  3. ESTRADIOL. [Concomitant]
     Active Substance: ESTRADIOL
  4. METAMUCIL [Concomitant]
     Active Substance: PLANTAGO SEED
  5. SYNTHROID [Concomitant]
     Active Substance: LEVOTHYROXINE SODIUM
  6. ROSUVASTATIN. [Concomitant]
     Active Substance: ROSUVASTATIN
  7. LYSINE [Concomitant]
     Active Substance: LYSINE
  8. VITAMIN D [Concomitant]
     Active Substance: VITAMIN D NOS
  9. CALCIUM [Concomitant]
     Active Substance: CALCIUM
  10. MOMETAZONE/MUPIROCIN SINUS RINSE [Concomitant]
  11. VITAMIN D [Concomitant]
     Active Substance: VITAMIN D NOS
  12. PROLIA [Suspect]
     Active Substance: DENOSUMAB
     Indication: OSTEOPOROSIS
     Dates: start: 20201228, end: 20210628
  13. OMEGA 3 [Concomitant]
     Active Substance: OMEGA-3 FATTY ACIDS

REACTIONS (19)
  - Gastric disorder [None]
  - Sinusitis [None]
  - Immune system disorder [None]
  - Bronchitis [None]
  - Toothache [None]
  - Gingival pain [None]
  - Vitreous detachment [None]
  - Alopecia [None]
  - Diarrhoea [None]
  - Influenza like illness [None]
  - Pain [None]
  - Headache [None]
  - Vomiting [None]
  - Bedridden [None]
  - Pyrexia [None]
  - Back pain [None]
  - Arthralgia [None]
  - Vitreous floaters [None]
  - Photopsia [None]

NARRATIVE: CASE EVENT DATE: 20201228
